FAERS Safety Report 10013010 (Version 1)
Quarter: 2014Q1

REPORT INFORMATION
  Report Type: Spontaneous
  Country: FR (occurrence: FR)
  Receive Date: 20140314
  Receipt Date: 20140314
  Transmission Date: 20141002
  Serious: Yes (Hospitalization)
  Sender: FDA-Public Use
  Company Number: FR-GE HEALTHCARE MEDICAL DIAGNOSTICS-OMPQ-PR-1403S-0244

PATIENT
  Age: 50 Year
  Sex: Male

DRUGS (7)
  1. OMNIPAQUE [Suspect]
     Indication: PRODUCT USED FOR UNKNOWN INDICATION
     Route: 042
     Dates: start: 20140217, end: 20140217
  2. OMNIPAQUE [Suspect]
     Indication: DIAGNOSTIC PROCEDURE
  3. CISPLATINE [Suspect]
     Indication: LUNG CARCINOMA CELL TYPE UNSPECIFIED STAGE IV
     Dosage: DOSE NOT REPORTED
     Route: 042
     Dates: start: 20140121, end: 20140204
  4. CISPLATINE [Suspect]
     Indication: DIAGNOSTIC PROCEDURE
  5. AUGMENTIN [Suspect]
     Indication: LUNG DISORDER
     Dosage: DOSE NOT REPORTED
     Route: 042
     Dates: start: 20140211, end: 20140216
  6. FLAGYL                             /00012501/ [Concomitant]
  7. ALIMTA [Concomitant]

REACTIONS (2)
  - Kidney infection [Recovered/Resolved]
  - Condition aggravated [Recovered/Resolved]
